FAERS Safety Report 5720649-3 (Version None)
Quarter: 2008Q2

REPORT INFORMATION
  Report Type: 
  Country: None (occurrence: None)
  Receive Date: 20080429
  Receipt Date: 20080417
  Transmission Date: 20081010
  Serious: Yes (Hospitalization, Other)
  Sender: FDA-Public Use
  Company Number: NL-JNJFOC-20080405464

PATIENT
  Sex: Female

DRUGS (4)
  1. CONCERTA [Suspect]
     Indication: ATTENTION DEFICIT/HYPERACTIVITY DISORDER
     Route: 048
  2. CYMBALTA [Suspect]
     Indication: DEPRESSION
     Route: 048
  3. OXAZEPAM [Concomitant]
     Route: 048
  4. SEROQUEL [Concomitant]
     Route: 048

REACTIONS (11)
  - ANXIETY [None]
  - BALANCE DISORDER [None]
  - CHEST DISCOMFORT [None]
  - DEPRESSED MOOD [None]
  - DISINHIBITION [None]
  - EXTRAPYRAMIDAL DISORDER [None]
  - HYPERHIDROSIS [None]
  - HYPERVENTILATION [None]
  - MUSCULAR WEAKNESS [None]
  - MUSCULOSKELETAL PAIN [None]
  - OCULOGYRIC CRISIS [None]
